FAERS Safety Report 7353519-8 (Version None)
Quarter: 2011Q1

REPORT INFORMATION
  Report Type: 
  Country: None (occurrence: None)
  Receive Date: 20110315
  Receipt Date: 20110310
  Transmission Date: 20110831
  Serious: Yes (Other)
  Sender: FDA-Public Use
  Company Number: GB-PURDUE-GBR_2008_0004543

PATIENT

DRUGS (4)
  1. FENTANYL [Concomitant]
     Indication: ANAESTHESIA
     Dosage: 100 MCG, UNK
     Route: 065
  2. MORPHINE [Concomitant]
     Indication: ANAESTHESIA
     Dosage: 10 MG, UNK
     Route: 065
  3. MORPHINE SULDATE [Suspect]
     Indication: ANALGESIC THERAPY
     Dosage: 10 MG, UNK
     Route: 065
  4. TRAMADOL [Suspect]
     Indication: ANALGESIC THERAPY
     Dosage: 100 MG, UNK
     Route: 042

REACTIONS (4)
  - PAIN [None]
  - DRUG EXPOSURE DURING PREGNANCY [None]
  - RETCHING [None]
  - NAUSEA [None]
